FAERS Safety Report 5086719-0 (Version None)
Quarter: 2006Q3

REPORT INFORMATION
  Report Type: 
  Country: None (occurrence: None)
  Receive Date: 20060823
  Receipt Date: 20051227
  Transmission Date: 20061208
  Serious: Yes (Hospitalization)
  Sender: FDA-Public Use
  Company Number: US-ROCHE-430219

PATIENT
  Age: 22 Year
  Sex: Male
  Weight: 68 kg

DRUGS (1)
  1. ACCUTANE [Suspect]
     Indication: ACNE
     Route: 048
     Dates: start: 19890915, end: 19900915

REACTIONS (23)
  - AUTOIMMUNE DISORDER [None]
  - COLITIS [None]
  - COLITIS ULCERATIVE [None]
  - DIABETES MELLITUS INSULIN-DEPENDENT [None]
  - DIARRHOEA [None]
  - FAECES DISCOLOURED [None]
  - GASTRIC DISORDER [None]
  - HAEMATOCHEZIA [None]
  - HAEMATOCRIT DECREASED [None]
  - HAEMOGLOBIN DECREASED [None]
  - HEADACHE [None]
  - INFLAMMATORY BOWEL DISEASE [None]
  - MENTAL STATUS CHANGES [None]
  - NAUSEA [None]
  - PYREXIA [None]
  - RECTAL FISSURE [None]
  - RECTAL HAEMORRHAGE [None]
  - RHEUMATOID ARTHRITIS [None]
  - SOMNOLENCE [None]
  - TENSION HEADACHE [None]
  - UNEVALUABLE EVENT [None]
  - VISUAL DISTURBANCE [None]
  - WEIGHT DECREASED [None]
